APPROVED DRUG PRODUCT: NILOTINIB HYDROCHLORIDE
Active Ingredient: NILOTINIB HYDROCHLORIDE
Strength: EQ 150MG BASE
Dosage Form/Route: CAPSULE;ORAL
Application: A209651 | Product #001 | TE Code: AB
Applicant: HETERO LABS LTD UNIT V
Approved: Nov 19, 2025 | RLD: No | RS: No | Type: RX